FAERS Safety Report 5815981-9 (Version None)
Quarter: 2008Q3

REPORT INFORMATION
  Report Type: 
  Country: None (occurrence: None)
  Receive Date: 20080721
  Receipt Date: 20080711
  Transmission Date: 20090109
  Serious: Yes (Hospitalization)
  Sender: FDA-Public Use
  Company Number: PHHY2008JP13911

PATIENT
  Age: 66 Year
  Sex: Female

DRUGS (5)
  1. ZOMETA [Suspect]
     Indication: METASTASES TO BONE
     Dosage: UNK
     Route: 041
     Dates: start: 20060701, end: 20080424
  2. XELODA [Concomitant]
     Dosage: 2400 MG
     Route: 048
     Dates: end: 20061117
  3. ENDOXAN [Concomitant]
     Dosage: 100 MG
     Route: 048
     Dates: end: 20071117
  4. AROMASIN [Concomitant]
     Dosage: 25 MG
     Route: 048
     Dates: end: 20070622
  5. TAXOL [Concomitant]
     Dosage: 130 MG
     Route: 041
     Dates: start: 20070628, end: 20071227

REACTIONS (1)
  - OSTEONECROSIS [None]
